FAERS Safety Report 9454819 (Version 1)
Quarter: 2013Q3

REPORT INFORMATION
  Report Type: Spontaneous
  Country: FR (occurrence: FR)
  Receive Date: 20130812
  Receipt Date: 20130812
  Transmission Date: 20140515
  Serious: Yes (Hospitalization)
  Sender: FDA-Public Use
  Company Number: FR-ROCHE-1260339

PATIENT
  Age: 79 Year
  Sex: Male

DRUGS (6)
  1. ZELBORAF [Suspect]
     Indication: MALIGNANT MELANOMA
     Route: 048
     Dates: start: 20120312
  2. ESOMEPRAZOLE [Concomitant]
     Route: 065
  3. XATRAL [Concomitant]
     Route: 065
  4. LEVOTHYROX [Concomitant]
     Route: 065
  5. ZYLORIC [Concomitant]
     Route: 065
  6. RANIBIZUMAB [Concomitant]
     Route: 065

REACTIONS (1)
  - Renal failure [Not Recovered/Not Resolved]
